FAERS Safety Report 6414910-7 (Version None)
Quarter: 2009Q4

REPORT INFORMATION
  Report Type: 
  Country: None (occurrence: None)
  Receive Date: 20091026
  Receipt Date: 20090520
  Transmission Date: 20100525
  Serious: No
  Sender: FDA-Public Use
  Company Number: US-ABBOTT-09P-163-0575031-00

PATIENT
  Sex: Female

DRUGS (3)
  1. LUPRON DEPOT [Suspect]
     Indication: INFERTILITY
     Dates: start: 20070801, end: 20071101
  2. BRAVELLE [Concomitant]
     Indication: DRUG USE FOR UNKNOWN INDICATION
  3. MENOPUR [Concomitant]
     Indication: DRUG USE FOR UNKNOWN INDICATION

REACTIONS (7)
  - ABDOMINAL DISTENSION [None]
  - HOT FLUSH [None]
  - MENSTRUAL DISORDER [None]
  - MIGRAINE [None]
  - MOOD SWINGS [None]
  - VAGINAL DISCHARGE [None]
  - WEIGHT INCREASED [None]
